FAERS Safety Report 16996155 (Version 1)
Quarter: 2019Q4

REPORT INFORMATION
  Report Type: Report from Study
  Country: CA (occurrence: CA)
  Receive Date: 20191105
  Receipt Date: 20191105
  Transmission Date: 20200122
  Serious: Yes (Other)
  Sender: FDA-Public Use
  Company Number: PHHY2017CA196013

PATIENT
  Age: 47 Year
  Sex: Female

DRUGS (3)
  1. GILENYA [Suspect]
     Active Substance: FINGOLIMOD HYDROCHLORIDE
     Indication: MULTIPLE SCLEROSIS
     Dosage: QD
     Route: 048
     Dates: start: 20140911
  2. ZOPLICONE [Concomitant]
     Active Substance: ZOPICLONE
     Indication: PRODUCT USED FOR UNKNOWN INDICATION
     Route: 065
  3. VITAMIN D [Concomitant]
     Active Substance: VITAMIN D NOS
     Indication: PRODUCT USED FOR UNKNOWN INDICATION
     Route: 065

REACTIONS (15)
  - Muscle spasticity [Recovered/Resolved]
  - Blood cholesterol increased [Unknown]
  - Diffuse alopecia [Unknown]
  - Rash [Recovered/Resolved]
  - Nausea [Recovered/Resolved]
  - Platelet count decreased [Unknown]
  - Headache [Recovered/Resolved]
  - Bronchitis [Recovered/Resolved]
  - Visual acuity reduced [Recovered/Resolved]
  - Eczema [Unknown]
  - Blood alkaline phosphatase increased [Unknown]
  - Coordination abnormal [Recovered/Resolved]
  - Granuloma annulare [Recovered/Resolved]
  - Back pain [Recovered/Resolved]
  - Fatigue [Unknown]

NARRATIVE: CASE EVENT DATE: 20140911
